FAERS Safety Report 5907263-1 (Version None)
Quarter: 2008Q4

REPORT INFORMATION
  Report Type: 
  Country: None (occurrence: None)
  Receive Date: 20081003
  Receipt Date: 20080926
  Transmission Date: 20090506
  Serious: Yes (Hospitalization)
  Sender: FDA-Public Use
  Company Number: PHHY2008SK23061

PATIENT
  Age: 69 Year
  Sex: Female

DRUGS (8)
  1. RASILEZ [Suspect]
     Dosage: 150 MG, DAILY
     Dates: start: 20080601
  2. RASILEZ [Suspect]
     Dosage: 300 MG, DAILY
  3. ATACAND [Concomitant]
     Dosage: 16 MG, BID
  4. BISOPROLOL FUMARATE [Concomitant]
     Dosage: 2 MG, QD
  5. CADUET [Concomitant]
     Dosage: 10 MG, QD
  6. TICLOPIDINE HCL [Concomitant]
     Dosage: 250 MG, QD
  7. NEUROL                                  /CZE/ [Concomitant]
  8. NOLICIN [Concomitant]

REACTIONS (4)
  - BLOOD PRESSURE INADEQUATELY CONTROLLED [None]
  - DYSPNOEA [None]
  - PALPITATIONS [None]
  - URINARY TRACT INFECTION [None]
